FAERS Safety Report 9995578 (Version 2)
Quarter: 2014Q1

REPORT INFORMATION
  Report Type: Spontaneous
  Country: US (occurrence: US)
  Receive Date: 20140311
  Receipt Date: 20140314
  Transmission Date: 20141002
  Serious: Yes (Other)
  Sender: FDA-Public Use
  Company Number: US-BAYER-2014-033111

PATIENT
  Age: 44 Year
  Sex: Female

DRUGS (1)
  1. GADAVIST [Suspect]
     Indication: BRAIN NEOPLASM
     Dosage: 7 ML, ONCE
     Dates: start: 20140227, end: 20140227

REACTIONS (4)
  - Injection site phlebitis [None]
  - Vascular pain [None]
  - Injection site pain [None]
  - Emotional distress [None]
